FAERS Safety Report 25718283 (Version 2)
Quarter: 2025Q4

REPORT INFORMATION
  Report Type: Report from Study
  Country: US (occurrence: US)
  Receive Date: 20250822
  Receipt Date: 20251112
  Transmission Date: 20260117
  Serious: Yes (Other)
  Sender: ABBVIE
  Company Number: US-ABBVIE-6424346

PATIENT
  Age: 76 Year
  Sex: Female

DRUGS (1)
  1. SKYRIZI [Suspect]
     Active Substance: RISANKIZUMAB-RZAA
     Indication: Crohn^s disease
     Route: 058
     Dates: start: 20250115

REACTIONS (5)
  - Colectomy [Not Recovered/Not Resolved]
  - Stoma site infection [Unknown]
  - Device leakage [Not Recovered/Not Resolved]
  - Medical device site pruritus [Not Recovered/Not Resolved]
  - Stoma site rash [Not Recovered/Not Resolved]

NARRATIVE: CASE EVENT DATE: 20250101
